FAERS Safety Report 16652683 (Version 1)
Quarter: 2019Q3

REPORT INFORMATION
  Report Type: Spontaneous
  Country: DE (occurrence: DE)
  Receive Date: 20190731
  Receipt Date: 20190731
  Transmission Date: 20191004
  Serious: Yes (Congenital Anomaly, Other)
  Sender: FDA-Public Use
  Company Number: DE-LEO PHARMA-323457

PATIENT
  Age: 1 Day
  Sex: Female
  Weight: 2.45 kg

DRUGS (9)
  1. SKINOREN CREAM [Suspect]
     Active Substance: AZELAIC ACID
     Indication: ACNE
  2. VOMEX A [Concomitant]
     Active Substance: DIMENHYDRINATE
     Indication: GASTROENTERITIS
     Dosage: 7.1. - 7.3. GESTATIONAL WEEK
     Route: 064
  3. SKINOREN GEL [Suspect]
     Active Substance: AZELAIC ACID
     Indication: ACNE
     Dosage: 12 - 34.5. GESTATIONAL WEEK
     Route: 064
  4. UTROGEST [Concomitant]
     Active Substance: PROGESTERONE
     Indication: LUTEAL PHASE DEFICIENCY
     Dosage: 11. - 12. GESTATIONAL WEEK
     Route: 064
  5. SKINOREN CREAM [Suspect]
     Active Substance: AZELAIC ACID
     Indication: ACNE
     Route: 064
  6. ACETYLSALICYLIC ACID [Concomitant]
     Active Substance: ASPIRIN
     Indication: PROPHYLAXIS
     Dosage: 100 MG, QD, 0. - 12. GESTATIONAL WEEK
     Route: 064
  7. ISLA-MOOS [Concomitant]
     Indication: BRONCHITIS
     Dosage: 8. - 9. GESTATIONAL WEEK
     Route: 064
  8. SKINOREN GEL [Suspect]
     Active Substance: AZELAIC ACID
     Indication: ACNE
  9. LORATADIN [Concomitant]
     Active Substance: LORATADINE
     Indication: HYPERSENSITIVITY
     Dosage: 0. - 29.4. GESTATIONAL WEEK
     Route: 064

REACTIONS (14)
  - Clinodactyly [Not Recovered/Not Resolved]
  - Diastasis recti abdominis [Not Recovered/Not Resolved]
  - Gastrooesophageal reflux disease [Not Recovered/Not Resolved]
  - Extrapyramidal disorder [Unknown]
  - Atrial septal defect [Not Recovered/Not Resolved]
  - Dysphagia [Not Recovered/Not Resolved]
  - Syndactyly [Not Recovered/Not Resolved]
  - Hypotonia [Not Recovered/Not Resolved]
  - Dysmorphism [Unknown]
  - Foetal exposure during pregnancy [Unknown]
  - Ballismus [Recovering/Resolving]
  - Laryngomalacia [Not Recovered/Not Resolved]
  - Pierre Robin syndrome [Not Recovered/Not Resolved]
  - Foot deformity [Not Recovered/Not Resolved]

NARRATIVE: CASE EVENT DATE: 20181120
